FAERS Safety Report 7536205-0 (Version None)
Quarter: 2011Q2

REPORT INFORMATION
  Report Type: 
  Country: None (occurrence: None)
  Receive Date: 20110609
  Receipt Date: 20110526
  Transmission Date: 20111010
  Serious: Yes (Life-Threatening, Other)
  Sender: FDA-Public Use
  Company Number: FR-JNJFOC-20110302637

PATIENT
  Age: 19 Year
  Sex: Female

DRUGS (4)
  1. REMICADE [Suspect]
     Indication: CROHN'S DISEASE
     Route: 042
     Dates: start: 20101223
  2. REMICADE [Suspect]
     Route: 042
     Dates: start: 20101028
  3. REMICADE [Suspect]
     Route: 042
     Dates: start: 20080710
  4. REMICADE [Suspect]
     Route: 042
     Dates: start: 20110210

REACTIONS (12)
  - BLOOD PRESSURE INCREASED [None]
  - HOT FLUSH [None]
  - DRY SKIN [None]
  - PRURITUS [None]
  - ARTHRALGIA [None]
  - SKIN REACTION [None]
  - ANAPHYLACTIC REACTION [None]
  - RASH PAPULAR [None]
  - MALAISE [None]
  - INFUSION RELATED REACTION [None]
  - CHEST DISCOMFORT [None]
  - EYELID OEDEMA [None]
